FAERS Safety Report 14553520 (Version 1)
Quarter: 2018Q1

REPORT INFORMATION
  Report Type: Spontaneous
  Country: FR (occurrence: FR)
  Receive Date: 20180220
  Receipt Date: 20180220
  Transmission Date: 20180509
  Serious: Yes (Hospitalization)
  Sender: FDA-Public Use
  Company Number: FR-TEVA-2018-FR-856959

PATIENT
  Age: 27 Year
  Sex: Male
  Weight: 80 kg

DRUGS (3)
  1. CIPROFLOXACIN. [Suspect]
     Active Substance: CIPROFLOXACIN
     Indication: OSTEITIS
     Route: 048
     Dates: start: 20171103, end: 20171112
  2. TAZOBACTUM [Suspect]
     Active Substance: TAZOBACTAM
     Indication: OSTEITIS
     Dates: start: 20171021, end: 20171112
  3. PIPERACILLINE BASE [Suspect]
     Active Substance: PIPERACILLIN SODIUM
     Indication: OSTEITIS
     Dates: start: 20171021, end: 20171112

REACTIONS (1)
  - Rash maculo-papular [Recovering/Resolving]

NARRATIVE: CASE EVENT DATE: 20171110
